FAERS Safety Report 15969454 (Version 2)
Quarter: 2019Q1

REPORT INFORMATION
  Report Type: Report from Study
  Country: US (occurrence: US)
  Receive Date: 20190215
  Receipt Date: 20190320
  Transmission Date: 20190418
  Serious: Yes (Other)
  Sender: FDA-Public Use
  Company Number: US-ACTELION-A-NJ2016-138765

PATIENT
  Sex: Female
  Weight: 56.69 kg

DRUGS (3)
  1. ORENITRAM [Suspect]
     Active Substance: TREPROSTINIL
     Indication: PRODUCT USED FOR UNKNOWN INDICATION
     Dosage: 0.125 MG, TID
     Route: 065
  2. ADCIRCA [Concomitant]
     Active Substance: TADALAFIL
  3. OPSUMIT [Suspect]
     Active Substance: MACITENTAN
     Indication: PULMONARY ARTERIAL HYPERTENSION
     Dosage: 10 MG, QD
     Route: 048
     Dates: start: 20140909

REACTIONS (16)
  - Decreased appetite [Unknown]
  - Blood creatine increased [Unknown]
  - Gastric disorder [Unknown]
  - Diarrhoea [Recovering/Resolving]
  - Weight increased [Unknown]
  - Catheterisation cardiac [Unknown]
  - Scleroderma [Unknown]
  - Eructation [Unknown]
  - Deafness [Unknown]
  - Musculoskeletal stiffness [Unknown]
  - Chronic kidney disease [Unknown]
  - Flatulence [Unknown]
  - Nasal congestion [Unknown]
  - Headache [Recovering/Resolving]
  - Tinnitus [Unknown]
  - Abdominal pain upper [Unknown]
